FAERS Safety Report 7119543-5 (Version None)
Quarter: 2010Q4

REPORT INFORMATION
  Report Type: 
  Country: None (occurrence: None)
  Receive Date: 20101123
  Receipt Date: 20101115
  Transmission Date: 20110411
  Serious: Yes (Hospitalization)
  Sender: FDA-Public Use
  Company Number: CA-JNJFOC-20101105957

PATIENT
  Sex: Female
  Weight: 73.2 kg

DRUGS (11)
  1. REMICADE [Suspect]
     Indication: CROHN'S DISEASE
     Dosage: 9 INFUSIONS; LAST INFUSION STOPPED AND RESTARTED ON THE SAME DAY
     Route: 042
  2. REMICADE [Suspect]
     Route: 042
  3. REMICADE [Suspect]
     Dosage: 9 INFUSIONS
     Route: 042
  4. REMICADE [Suspect]
     Route: 042
  5. PLAVIX [Suspect]
     Indication: CAROTID ARTERY STENT INSERTION
  6. PREDNISONE [Concomitant]
  7. RAMIPRIL [Concomitant]
  8. ADVIL [Concomitant]
  9. LANSOPRAZOLE [Concomitant]
  10. ZOPICLONE [Concomitant]
  11. CITALOPRAM HYDROBROMIDE [Concomitant]

REACTIONS (4)
  - CAROTID ARTERY STENT INSERTION [None]
  - INFUSION RELATED REACTION [None]
  - PRURITUS [None]
  - RECTAL HAEMORRHAGE [None]
